FAERS Safety Report 6139967-2 (Version None)
Quarter: 2009Q2

REPORT INFORMATION
  Report Type: 
  Country: None (occurrence: None)
  Receive Date: 20090401
  Receipt Date: 20090327
  Transmission Date: 20091009
  Serious: Yes (Hospitalization)
  Sender: FDA-Public Use
  Company Number: SE-ASTRAZENECA-2009SE00997

PATIENT
  Sex: Male

DRUGS (16)
  1. PLENDIL [Suspect]
     Indication: ATRIAL FIBRILLATION
     Route: 048
     Dates: start: 20000701, end: 20010301
  2. PLENDIL [Suspect]
     Indication: HYPERTENSION
     Route: 048
     Dates: start: 20000701, end: 20010301
  3. PLENDIL [Suspect]
     Indication: CARDIAC FAILURE
     Route: 048
     Dates: start: 20000701, end: 20010301
  4. PLENDIL [Suspect]
     Route: 048
     Dates: start: 20040422
  5. PLENDIL [Suspect]
     Route: 048
     Dates: start: 20040422
  6. PLENDIL [Suspect]
     Route: 048
     Dates: start: 20040422
  7. PLENDIL [Suspect]
     Route: 048
     Dates: start: 20081104, end: 20090211
  8. PLENDIL [Suspect]
     Route: 048
     Dates: start: 20081104, end: 20090211
  9. PLENDIL [Suspect]
     Route: 048
     Dates: start: 20081104, end: 20090211
  10. BETABLOCKER [Concomitant]
     Indication: ATRIAL FIBRILLATION
  11. BETABLOCKER [Concomitant]
     Indication: CARDIAC FAILURE
  12. ACE INHIBITOR [Concomitant]
     Indication: ATRIAL FIBRILLATION
  13. ACE INHIBITOR [Concomitant]
     Indication: CARDIAC FAILURE
  14. DIOVAN [Concomitant]
  15. SPIRONOLACTONE [Concomitant]
  16. FUROSEMID [Concomitant]

REACTIONS (4)
  - GAMMA-GLUTAMYLTRANSFERASE INCREASED [None]
  - LOCALISED OEDEMA [None]
  - OEDEMA GENITAL [None]
  - OEDEMA PERIPHERAL [None]
